FAERS Safety Report 6544809-7 (Version None)
Quarter: 2010Q1

REPORT INFORMATION
  Report Type: 
  Country: None (occurrence: None)
  Receive Date: 20100121
  Receipt Date: 20100113
  Transmission Date: 20100710
  Serious: Yes (Other)
  Sender: FDA-Public Use
  Company Number: GB-WYE-H12981910

PATIENT
  Age: 9 Year
  Sex: Male

DRUGS (7)
  1. PIPERACILLIN AND TAZOBACTAM [Suspect]
     Indication: LIVER ABSCESS
     Dosage: UNKNOWN
     Route: 042
  2. LINEZOLID [Concomitant]
     Indication: STAPHYLOCOCCAL ABSCESS
     Dosage: 10 MG/KG/DOSE
     Route: 048
  3. LINEZOLID [Concomitant]
     Indication: LIVER ABSCESS
  4. DAPTOMYCIN [Concomitant]
     Indication: LIVER ABSCESS
     Dosage: 4 MG/KG
     Route: 042
  5. DAPTOMYCIN [Concomitant]
     Indication: STAPHYLOCOCCAL ABSCESS
  6. FLOXACILLIN SODIUM [Suspect]
     Indication: LIVER ABSCESS
     Dosage: UNKNOWN
     Route: 042
  7. TEICOPLANIN [Suspect]
     Indication: LIVER ABSCESS
     Dosage: UNKNOWN
     Route: 042

REACTIONS (1)
  - DRUG RASH WITH EOSINOPHILIA AND SYSTEMIC SYMPTOMS [None]
